FAERS Safety Report 12897105 (Version 1)
Quarter: 2016Q4

REPORT INFORMATION
  Report Type: Spontaneous
  Country: US (occurrence: US)
  Receive Date: 20161029
  Receipt Date: 20161029
  Transmission Date: 20170207
  Serious: Yes (Death, Hospitalization)
  Sender: FDA-Public Use
  Company Number: None

PATIENT
  Age: 82 Year
  Sex: Female
  Weight: 59.4 kg

DRUGS (7)
  1. MULTIVITAMIN [Concomitant]
     Active Substance: VITAMINS
  2. HYDROCODONE [Concomitant]
     Active Substance: HYDROCODONE
  3. AMLODIPINE [Concomitant]
     Active Substance: AMLODIPINE BESYLATE
  4. CORDARONE [Suspect]
     Active Substance: AMIODARONE HYDROCHLORIDE
     Indication: ATRIAL FIBRILLATION
     Dosage: ?          QUANTITY:1 TABLET(S);?
     Route: 048
     Dates: start: 20140930, end: 20160321
  5. XARELTO [Concomitant]
     Active Substance: RIVAROXABAN
  6. AMIODARONE [Concomitant]
     Active Substance: AMIODARONE
  7. MILK THISTLE [Concomitant]
     Active Substance: MILK THISTLE

REACTIONS (12)
  - Weight decreased [None]
  - Alopecia [None]
  - Fall [None]
  - Atrial fibrillation [None]
  - Abdominal distension [None]
  - Hypothyroidism [None]
  - Confusional state [None]
  - Fatigue [None]
  - Oedema peripheral [None]
  - Ascites [None]
  - Asthenia [None]
  - Toxicity to various agents [None]

NARRATIVE: CASE EVENT DATE: 20160203
